FAERS Safety Report 9204208 (Version 10)
Quarter: 2013Q3

REPORT INFORMATION
  Report Type: Report from Study
  Country: GB (occurrence: GB)
  Receive Date: 20130402
  Receipt Date: 20130708
  Transmission Date: 20140515
  Serious: Yes (Life-Threatening, Hospitalization, Other)
  Sender: FDA-Public Use
  Company Number: GB-PFIZER INC-2013100506

PATIENT
  Age: 57 Year
  Sex: Female
  Weight: 127 kg

DRUGS (23)
  1. CYCLOPHOSPHAMIDE [Suspect]
     Indication: DIFFUSE LARGE B-CELL LYMPHOMA
     Dosage: 150 (UNITS NOT PROVIDED)
  2. DOXORUBICIN [Suspect]
     Indication: DIFFUSE LARGE B-CELL LYMPHOMA
     Dosage: 100 (UNITS NOT PROVIDED)
  3. RITUXIMAB [Suspect]
     Indication: DIFFUSE LARGE B-CELL LYMPHOMA
     Dosage: 850 MG, SINGLE
     Route: 042
     Dates: start: 20130321, end: 20130321
  4. RITUXIMAB [Suspect]
     Dosage: UNK
     Route: 042
     Dates: start: 20130322
  5. PREDNISONE [Suspect]
     Indication: DIFFUSE LARGE B-CELL LYMPHOMA
     Dosage: 100 (UNITS NOT REPORTED)
  6. VINCRISTINE SULFATE [Suspect]
     Indication: DIFFUSE LARGE B-CELL LYMPHOMA
     Dosage: 1.4 MG/M2, UNK
  7. METFORMIN [Concomitant]
     Dosage: 500 MG, 2X/DAY
     Route: 048
  8. SIMVASTATIN [Concomitant]
     Dosage: 40 MG, AT NIGHT
     Route: 048
  9. BISOPROLOL [Concomitant]
     Dosage: 5 MG, 1X/DAY
     Route: 048
  10. BENDROFLUMETHIAZIDE [Concomitant]
     Dosage: 5 MG, 1X/DAY
     Route: 048
  11. LACIDIPINE [Concomitant]
     Dosage: 5 MG, 1X/DAY
     Route: 048
  12. OMEPRAZOLE [Concomitant]
     Dosage: 20 MG, 1X/DAY
     Route: 048
  13. SERETIDE [Concomitant]
     Dosage: 2 DF, UNK
     Route: 048
  14. PREDNISOLONE [Concomitant]
     Indication: PROPHYLAXIS
     Dosage: 100 MG, 1X/DAY
     Route: 048
     Dates: start: 20130321, end: 20130322
  15. PARACETAMOL [Concomitant]
     Indication: PREMEDICATION
     Dosage: 1000 MG, UNK
     Route: 048
     Dates: start: 20130321, end: 20130322
  16. PARACETAMOL [Concomitant]
     Dosage: 1000 MG, UNK
     Dates: start: 20130416, end: 20130416
  17. PARACETAMOL [Concomitant]
     Dosage: 1000 MG, UNK
     Dates: start: 20130513, end: 20130513
  18. PARACETAMOL [Concomitant]
     Dosage: 1000 MG, UNK
     Dates: start: 20130603, end: 20130603
  19. CHLORPHENIRAMINE [Concomitant]
     Dosage: 10 MG, UNK
     Dates: start: 20130321, end: 20130321
  20. CHLORPHENIRAMINE [Concomitant]
     Dosage: 10 MG, UNK
     Dates: start: 20130416, end: 20130416
  21. CHLORPHENIRAMINE [Concomitant]
     Dosage: 10 MG, UNK
     Dates: start: 20130513, end: 20130513
  22. CHLORPHENIRAMINE [Concomitant]
     Dosage: 10 MG, UNK
     Route: 042
     Dates: start: 20130603, end: 20130603
  23. METOCLOPRAMIDE [Concomitant]
     Dosage: 10 MG, AS NEEDED
     Dates: start: 20130322

REACTIONS (5)
  - Infusion related reaction [Recovered/Resolved]
  - Hypoxia [Recovered/Resolved]
  - Flushing [Recovered/Resolved]
  - Tachycardia [Recovered/Resolved]
  - Dyspnoea [Recovered/Resolved]
